FAERS Safety Report 10206218 (Version 1)
Quarter: 2014Q2

REPORT INFORMATION
  Report Type: Spontaneous
  Country: US (occurrence: None)
  Receive Date: 20140527
  Receipt Date: 20140527
  Transmission Date: 20141212
  Serious: Yes (Disabling, Other)
  Sender: FDA-Public Use
  Company Number: None

PATIENT
  Age: 49 Year
  Sex: Female
  Weight: 65.77 kg

DRUGS (1)
  1. LEVAQUIN [Suspect]
     Dosage: 1 A DAY
     Dates: start: 20100507, end: 20100511

REACTIONS (3)
  - Pain [None]
  - Pain in extremity [None]
  - Arthralgia [None]
